FAERS Safety Report 6974993-2 (Version None)
Quarter: 2010Q3

REPORT INFORMATION
  Report Type: 
  Country: None (occurrence: None)
  Receive Date: 20100910
  Receipt Date: 20090115
  Transmission Date: 20110219
  Serious: No
  Sender: FDA-Public Use
  Company Number: US-WYE-H07757109

PATIENT
  Age: 70 Year
  Sex: Female

DRUGS (8)
  1. PRISTIQ [Suspect]
     Indication: ANXIETY
     Route: 048
     Dates: start: 20090106, end: 20090101
  2. PRISTIQ [Suspect]
     Indication: INSOMNIA
  3. SIMVASTATIN [Concomitant]
  4. METFORMIN [Concomitant]
  5. BENAZEPRIL HYDROCHLORIDE [Concomitant]
  6. HYDROCHLOROTHIAZIDE [Concomitant]
  7. LUNESTA [Concomitant]
  8. TRICOR [Concomitant]

REACTIONS (2)
  - MYALGIA [None]
  - NAUSEA [None]
